FAERS Safety Report 11641155 (Version 1)
Quarter: 2015Q4

REPORT INFORMATION
  Report Type: Spontaneous
  Country: US (occurrence: US)
  Receive Date: 20151019
  Receipt Date: 20151019
  Transmission Date: 20160304
  Serious: No
  Sender: FDA-Public Use
  Company Number: US-ENDO PHARMACEUTICALS INC.-2015-002316

PATIENT
  Sex: Male

DRUGS (1)
  1. AMITRIPTYLINE HCL 25MG [Suspect]
     Active Substance: AMITRIPTYLINE
     Indication: DEPRESSION
     Dosage: 12 OF THE 25 MG TABLETS DAILY (TOTAL DAILY DOSE OF 300 MG)
     Route: 048

REACTIONS (5)
  - Product quality issue [Unknown]
  - Feeling abnormal [Unknown]
  - Overdose [Not Recovered/Not Resolved]
  - Anxiety [Unknown]
  - Unevaluable event [Unknown]
